FAERS Safety Report 6556623-7 (Version None)
Quarter: 2010Q1

REPORT INFORMATION
  Report Type: 
  Country: None (occurrence: None)
  Receive Date: 20100128
  Receipt Date: 20090129
  Transmission Date: 20100710
  Serious: Yes (Other)
  Sender: FDA-Public Use
  Company Number: US-PFIZER INC-2009151676

PATIENT
  Sex: Male
  Weight: 87.075 kg

DRUGS (5)
  1. ZOLOFT [Suspect]
     Indication: OBSESSIVE-COMPULSIVE DISORDER
     Dosage: 50 MG, 1X/DAY
     Route: 048
     Dates: start: 20080101
  2. ZOLOFT [Interacting]
     Indication: DEPRESSION
  3. ZOLOFT [Interacting]
     Indication: ANXIETY
  4. ROBITUSSIN ^ROBINS^ [Interacting]
     Dates: start: 20080101
  5. BUSPAR [Concomitant]

REACTIONS (10)
  - ANXIETY [None]
  - BRONCHITIS [None]
  - DEPRESSION [None]
  - DRUG INEFFECTIVE [None]
  - DRUG INTERACTION [None]
  - NASOPHARYNGITIS [None]
  - NERVOUSNESS [None]
  - PNEUMONIA [None]
  - SINUSITIS [None]
  - TREMOR [None]
